FAERS Safety Report 4902620-4 (Version None)
Quarter: 2006Q1

REPORT INFORMATION
  Report Type: 
  Country: None (occurrence: None)
  Receive Date: 20060207
  Receipt Date: 20060124
  Transmission Date: 20060701
  Serious: Yes (Hospitalization)
  Sender: FDA-Public Use
  Company Number: PHBS2006AT01358

PATIENT
  Sex: Male

DRUGS (3)
  1. ZOMETA [Suspect]
     Indication: METASTASES TO BONE
     Route: 065
  2. ZOLADEX [Concomitant]
  3. RENITEC [Concomitant]

REACTIONS (1)
  - SMALL INTESTINAL HAEMORRHAGE [None]
